FAERS Safety Report 5261988-2 (Version None)
Quarter: 2007Q1

REPORT INFORMATION
  Report Type: 
  Country: None (occurrence: None)
  Receive Date: 20070308
  Receipt Date: 20070226
  Transmission Date: 20070707
  Serious: Yes (Other)
  Sender: FDA-Public Use
  Company Number: 2007US-05983

PATIENT
  Age: 3 Year
  Sex: Male

DRUGS (2)
  1. AMOXICILLIN [Suspect]
     Indication: EAR INFECTION
     Dosage: 400 MG/5ML, BID, ORAL
     Route: 048
     Dates: start: 20070220
  2. BENEDRYL [Concomitant]

REACTIONS (4)
  - CRYING [None]
  - DIARRHOEA [None]
  - HAEMATOCHEZIA [None]
  - INTESTINAL HAEMORRHAGE [None]
